FAERS Safety Report 4791912-8 (Version None)
Quarter: 2005Q4

REPORT INFORMATION
  Report Type: 
  Country: None (occurrence: None)
  Receive Date: 20051007
  Receipt Date: 20050906
  Transmission Date: 20060501
  Serious: Yes (Hospitalization)
  Sender: FDA-Public Use
  Company Number: SEWYE958707SEP05

PATIENT
  Sex: Male

DRUGS (5)
  1. ENBREL [Suspect]
     Indication: RHEUMATOID ARTHRITIS
     Dosage: DOSE REGIMEN WAS NOT SPECIFIED
     Route: 058
     Dates: start: 20040401, end: 20050701
  2. SANDIMMUNE [Suspect]
  3. MEDROL [Concomitant]
     Dates: start: 20050816
  4. ORUDIS [Concomitant]
  5. METHOTREXATE [Concomitant]
     Dates: start: 20050101

REACTIONS (3)
  - CEREBRAL ISCHAEMIA [None]
  - MENINGITIS VIRAL [None]
  - VASCULITIS CEREBRAL [None]
